FAERS Safety Report 6470849-2 (Version None)
Quarter: 2009Q4

REPORT INFORMATION
  Report Type: 
  Country: None (occurrence: None)
  Receive Date: 20091203
  Receipt Date: 20080107
  Transmission Date: 20100525
  Serious: Yes (Death)
  Sender: FDA-Public Use
  Company Number: TR-ELI_LILLY_AND_COMPANY-TR200801000944

PATIENT
  Age: 72 Year
  Sex: Female

DRUGS (2)
  1. HUMULIN N [Suspect]
     Indication: TYPE 2 DIABETES MELLITUS
     Dosage: 30 U, EACH MORNING
     Route: 058
     Dates: start: 20071001
  2. HUMULIN N [Suspect]
     Dosage: 20 U, EACH EVENING
     Route: 058
     Dates: start: 20071001

REACTIONS (1)
  - LUNG NEOPLASM MALIGNANT [None]
